FAERS Safety Report 7139439-2 (Version None)
Quarter: 2010Q4

REPORT INFORMATION
  Report Type: 
  Country: None (occurrence: None)
  Receive Date: 20101206
  Receipt Date: 20101201
  Transmission Date: 20110411
  Serious: Yes (Other)
  Sender: FDA-Public Use
  Company Number: US-PFIZER INC-2007069785

PATIENT
  Age: 56 Year
  Sex: Male
  Weight: 79.4 kg

DRUGS (3)
  1. LIPITOR [Suspect]
     Indication: BLOOD CHOLESTEROL
     Dosage: 10 MG, 1X/DAY
     Route: 048
  2. LIPITOR [Suspect]
     Indication: BLOOD CHOLESTEROL INCREASED
  3. ACETYLSALICYLIC ACID [Concomitant]
     Dosage: 88 MG, UNK

REACTIONS (3)
  - MUSCLE DISORDER [None]
  - MUSCLE SPASMS [None]
  - MYALGIA [None]
